FAERS Safety Report 12961248 (Version 2)
Quarter: 2017Q4

REPORT INFORMATION
  Report Type: Spontaneous
  Country: US (occurrence: US)
  Receive Date: 20161121
  Receipt Date: 20171110
  Transmission Date: 20180320
  Serious: No
  Sender: FDA-Public Use
  Company Number: US-PFIZER INC-2016536000

PATIENT
  Age: 69 Year
  Sex: Female

DRUGS (7)
  1. VITAMIN D [Concomitant]
     Active Substance: CHOLECALCIFEROL
     Dosage: UNK
  2. CLONAZEPAM. [Concomitant]
     Active Substance: CLONAZEPAM
     Dosage: UNK
  3. FOSAMAX [Concomitant]
     Active Substance: ALENDRONATE SODIUM
     Dosage: UNK
  4. FASLODEX [Concomitant]
     Active Substance: FULVESTRANT
     Dosage: UNK
  5. CALCIUM [Concomitant]
     Active Substance: CALCIUM
     Dosage: UNK
  6. IBRANCE [Suspect]
     Active Substance: PALBOCICLIB
     Indication: BREAST CANCER FEMALE
     Dosage: 125 MG, DAILY
     Route: 048
     Dates: start: 20160929
  7. KLONOPIN [Concomitant]
     Active Substance: CLONAZEPAM
     Dosage: UNK

REACTIONS (1)
  - White blood cell count decreased [Unknown]

NARRATIVE: CASE EVENT DATE: 20161024
